FAERS Safety Report 17198588 (Version 1)
Quarter: 2019Q4

REPORT INFORMATION
  Report Type: Report from Study
  Country: ES (occurrence: ES)
  Receive Date: 20191225
  Receipt Date: 20191225
  Transmission Date: 20200122
  Serious: Yes (Hospitalization)
  Sender: FDA-Public Use
  Company Number: ES-TEVA-2019-ES-1155931

PATIENT
  Age: 80 Year
  Sex: Male

DRUGS (6)
  1. CLOPIDOGREL [Suspect]
     Active Substance: CLOPIDOGREL BISULFATE
     Indication: THROMBOSIS PROPHYLAXIS
     Dosage: 75 MG PER DAY
     Route: 048
     Dates: start: 201903, end: 20190621
  2. BENESTAN 2,5 MG COMPRIMIDOS RECUBIERTOS CON PELICULA , 60 COMPRIMIDOS [Concomitant]
     Indication: BENIGN PROSTATIC HYPERPLASIA
     Dosage: 2.5 MG PER DAY
     Route: 048
     Dates: start: 2010
  3. ADIRO 100 MG COMPRIMIDOS GASTRORRESISTENTES EFG, 30 COMPRIMIDOS (POLIP [Interacting]
     Active Substance: ASPIRIN
     Indication: THROMBOSIS PROPHYLAXIS
     Dosage: 100 MG PER DAY
     Route: 048
     Dates: start: 201903, end: 20190621
  4. SPIRIVA 18 MICROGRAMOS POLVO PARA INHALACION , 1 INHALADOR + 30 CAPSUL [Concomitant]
     Indication: CHRONIC OBSTRUCTIVE PULMONARY DISEASE
     Dosage: 18 MICROGRAM PER DAY
     Route: 055
     Dates: start: 2015
  5. ATORVASTATINA (7400A) [Concomitant]
     Active Substance: ATORVASTATIN
     Indication: DYSLIPIDAEMIA
     Dosage: 40 MG PER DAY
     Route: 048
     Dates: start: 201810
  6. OMEPRAZOL (2141A) [Concomitant]
     Active Substance: OMEPRAZOLE
     Indication: GASTRITIS
     Dosage: 40 MG PER DAY
     Route: 048
     Dates: start: 2005

REACTIONS (2)
  - Haemoptysis [Recovered/Resolved]
  - Drug interaction [Unknown]

NARRATIVE: CASE EVENT DATE: 20190621
